FAERS Safety Report 7361108-4 (Version None)
Quarter: 2011Q1

REPORT INFORMATION
  Report Type: 
  Country: None (occurrence: None)
  Receive Date: 20110315
  Receipt Date: 20110315
  Transmission Date: 20110831
  Serious: Yes (Disabling, Congenital Anomaly)
  Sender: FDA-Public Use
  Company Number: None

PATIENT
  Age: 49 Year
  Sex: Male
  Weight: 69.4003 kg

DRUGS (12)
  1. DIAZEPAM [Concomitant]
  2. CITALOPRAM HYDROBROMIDE [Concomitant]
  3. FOSAMAX [Concomitant]
  4. ZYPREXA [Concomitant]
  5. CIPROFLOXACIN [Suspect]
     Indication: EPIDIDYMITIS
     Dosage: 500MG EVERY 12 HRS MOUTH
     Route: 048
     Dates: start: 20101231, end: 20110131
  6. VALIUM [Concomitant]
  7. NEXIUM [Concomitant]
  8. SIMVASTATIN [Concomitant]
  9. DEPAKOTE [Concomitant]
  10. DOXYCYCLINE [Concomitant]
  11. FLOMAX [Concomitant]
  12. CIPROFLOXACIN [Suspect]
     Indication: EPIDIDYMITIS
     Dosage: 250MG 2X DAY MOUTH
     Route: 048
     Dates: start: 20101105, end: 20101112

REACTIONS (6)
  - HYPERHIDROSIS [None]
  - WEIGHT INCREASED [None]
  - DIARRHOEA [None]
  - HOT FLUSH [None]
  - EAR PAIN [None]
  - PAIN [None]
